FAERS Safety Report 7463325-1 (Version None)
Quarter: 2011Q2

REPORT INFORMATION
  Report Type: 
  Country: None (occurrence: None)
  Receive Date: 20110506
  Receipt Date: 20110428
  Transmission Date: 20111010
  Serious: Yes (Other)
  Sender: FDA-Public Use
  Company Number: CA-ROCHE-774089

PATIENT
  Sex: Male

DRUGS (7)
  1. DILANTIN [Concomitant]
  2. AVASTIN [Suspect]
     Indication: GLIOBLASTOMA
     Route: 042
     Dates: start: 20100923
  3. COVERSYL [Concomitant]
  4. INDAPAMIDE [Concomitant]
     Dosage: DRUG: TMS-INDAPAMIDE
  5. DECADRON [Concomitant]
  6. METFORMIN [Concomitant]
  7. ATORVASTATIN [Concomitant]

REACTIONS (6)
  - RHINORRHOEA [None]
  - CHILLS [None]
  - SWELLING [None]
  - PYREXIA [None]
  - NASOPHARYNGITIS [None]
  - DYSPHONIA [None]
